FAERS Safety Report 14894799 (Version 3)
Quarter: 2019Q1

REPORT INFORMATION
  Report Type: Spontaneous
  Country: US (occurrence: US)
  Receive Date: 20180515
  Receipt Date: 20190222
  Transmission Date: 20190417
  Serious: No
  Sender: FDA-Public Use
  Company Number: US-ASTRAZENECA-2018SE49926

PATIENT
  Sex: Male
  Weight: 81.6 kg

DRUGS (2)
  1. BYDUREON BCISE [Suspect]
     Active Substance: EXENATIDE
     Indication: TYPE 2 DIABETES MELLITUS
     Route: 058
     Dates: start: 20180324
  2. BYDUREON BCISE [Suspect]
     Active Substance: EXENATIDE
     Indication: BLOOD GLUCOSE INCREASED
     Route: 058
     Dates: start: 20180324

REACTIONS (4)
  - Blood glucose increased [Unknown]
  - Device malfunction [Unknown]
  - Incorrect dose administered [Unknown]
  - Product dose omission [Unknown]
